FAERS Safety Report 23716638 (Version 3)
Quarter: 2024Q2

REPORT INFORMATION
  Report Type: Spontaneous
  Country: JP (occurrence: JP)
  Receive Date: 20240408
  Receipt Date: 20240502
  Transmission Date: 20240715
  Serious: Yes (Hospitalization, Other)
  Sender: FDA-Public Use
  Company Number: JP-GSKJP-JP2024JPN041751AA

PATIENT

DRUGS (1)
  1. DAPRODUSTAT [Suspect]
     Active Substance: DAPRODUSTAT
     Indication: Anaemia
     Dosage: DOSE INCREASE
     Route: 048

REACTIONS (2)
  - Cardiovascular disorder [Recovered/Resolved]
  - Lung neoplasm malignant [Unknown]
